FAERS Safety Report 11357519 (Version 1)
Quarter: 2015Q3

REPORT INFORMATION
  Report Type: Spontaneous
  Country: US (occurrence: US)
  Receive Date: 20150803
  Receipt Date: 20150803
  Transmission Date: 20151125
  Serious: No
  Sender: FDA-Public Use
  Company Number: US-ELI_LILLY_AND_COMPANY-US201405004311

PATIENT
  Age: 27 Year

DRUGS (4)
  1. DEPAKOTE [Concomitant]
     Active Substance: DIVALPROEX SODIUM
     Indication: PRODUCT USED FOR UNKNOWN INDICATION
  2. OLANZAPINE. [Suspect]
     Active Substance: OLANZAPINE
     Indication: TACHYPHRENIA
     Dosage: 22.5 MG, QD
     Route: 060
     Dates: start: 20140509
  3. OLANZAPINE. [Suspect]
     Active Substance: OLANZAPINE
     Indication: HALLUCINATION
     Dosage: 20 MG, QD
     Route: 048
     Dates: start: 201308
  4. OLANZAPINE. [Suspect]
     Active Substance: OLANZAPINE
     Indication: OBSESSIVE THOUGHTS
     Dosage: 20 MG, QD
     Route: 060
     Dates: start: 201403

REACTIONS (7)
  - Dizziness [Recovered/Resolved]
  - Prescribed overdose [Not Recovered/Not Resolved]
  - Fall [Recovered/Resolved]
  - Hallucination [Recovered/Resolved]
  - Intentional product use issue [Recovered/Resolved]
  - Obsessive thoughts [Recovered/Resolved]
  - Tachyphrenia [Recovered/Resolved]

NARRATIVE: CASE EVENT DATE: 201403
